FAERS Safety Report 17106824 (Version 1)
Quarter: 2019Q4

REPORT INFORMATION
  Report Type: Spontaneous
  Country: US (occurrence: US)
  Receive Date: 20191203
  Receipt Date: 20191203
  Transmission Date: 20200122
  Serious: No
  Sender: FDA-Public Use
  Company Number: US-CHIESI USA, INC.-US-2019CHI000333

PATIENT

DRUGS (2)
  1. BETHKIS [Suspect]
     Active Substance: TOBRAMYCIN
     Indication: OFF LABEL USE
  2. BETHKIS [Suspect]
     Active Substance: TOBRAMYCIN
     Indication: BRONCHIECTASIS
     Dosage: UNK
     Route: 055
     Dates: start: 201908, end: 201908

REACTIONS (5)
  - Respiratory rate decreased [Recovering/Resolving]
  - Drug ineffective for unapproved indication [Unknown]
  - Treatment noncompliance [Unknown]
  - Off label use [Recovered/Resolved]
  - Product complaint [Not Recovered/Not Resolved]

NARRATIVE: CASE EVENT DATE: 201908
